FAERS Safety Report 16928106 (Version 1)
Quarter: 2019Q4

REPORT INFORMATION
  Report Type: Spontaneous
  Country: MY (occurrence: MY)
  Receive Date: 20191017
  Receipt Date: 20191017
  Transmission Date: 20200122
  Serious: Yes (Hospitalization)
  Sender: FDA-Public Use
  Company Number: MY-TEVA-2019-MY-1121910

PATIENT
  Age: 39 Year
  Sex: Female

DRUGS (4)
  1. METOCLOPRAMIDE. [Suspect]
     Active Substance: METOCLOPRAMIDE
     Indication: HYPEREMESIS GRAVIDARUM
     Dosage: 30 MILLIGRAM DAILY;
     Route: 048
  2. BENZATROPINE [Suspect]
     Active Substance: BENZTROPINE
     Indication: DYSTONIA
     Dosage: THREE DOSES
     Route: 042
  3. METOCLOPRAMIDE. [Suspect]
     Active Substance: METOCLOPRAMIDE
     Indication: HYPEREMESIS GRAVIDARUM
     Route: 042
  4. FOLIC-ACID [Suspect]
     Active Substance: FOLIC ACID
     Route: 048

REACTIONS (4)
  - Torticollis [Recovered/Resolved]
  - Aphonia [Recovered/Resolved]
  - Maternal exposure during pregnancy [Unknown]
  - Dystonia [Recovered/Resolved]
